FAERS Safety Report 9895113 (Version 2)
Quarter: 2014Q1

REPORT INFORMATION
  Report Type: Spontaneous
  Country: US (occurrence: US)
  Receive Date: 20140213
  Receipt Date: 20140213
  Transmission Date: 20141002
  Serious: No
  Sender: FDA-Public Use
  Company Number: US-BRISTOL-MYERS SQUIBB COMPANY-18704148

PATIENT
  Age: 58 Year
  Sex: Female

DRUGS (1)
  1. ORENCIA FOR INJ 250 MG/VIAL [Suspect]
     Indication: RHEUMATOID ARTHRITIS
     Dosage: INCREASED FRM:500MG-750MG. ?2ND DOSE:14MAR2013.?INJ, POWDER, LYOPHILIZED, FOR SOLN 250MG, VIAL
     Route: 042

REACTIONS (2)
  - Paraesthesia [Unknown]
  - Drug ineffective [Unknown]
